FAERS Safety Report 17366086 (Version 2)
Quarter: 2020Q1

REPORT INFORMATION
  Report Type: Spontaneous
  Country: GB (occurrence: GB)
  Receive Date: 20200204
  Receipt Date: 20200312
  Transmission Date: 20200409
  Serious: Yes (Disabling, Other)
  Sender: FDA-Public Use
  Company Number: GB-MYLANLABS-2020M1011805

PATIENT
  Sex: Male

DRUGS (5)
  1. SIMVASTATIN. [Suspect]
     Active Substance: SIMVASTATIN
     Dosage: 400 MILLIGRAM, TOTAL
     Dates: start: 201309
  2. OILATUM                            /01690401/ [Concomitant]
     Indication: ECZEMA
  3. PULMICORT TURBUHALER [Concomitant]
     Active Substance: BUDESONIDE
     Indication: ASTHMA
     Route: 055
  4. VITAMIN B12 [Concomitant]
     Active Substance: CYANOCOBALAMIN
     Dosage: 1 DOSAGE FORM, Q3MONTHS
     Route: 051
  5. SIMVASTATIN. [Suspect]
     Active Substance: SIMVASTATIN
     Indication: PRODUCT USED FOR UNKNOWN INDICATION
     Dosage: 10 DOSAGE FORM
     Dates: start: 201309

REACTIONS (9)
  - Dyspnoea exertional [Unknown]
  - Pain in extremity [Unknown]
  - Genital burning sensation [Unknown]
  - Myalgia [Not Recovered/Not Resolved]
  - Memory impairment [Unknown]
  - Paraesthesia [Unknown]
  - Muscle atrophy [Not Recovered/Not Resolved]
  - Limb discomfort [Unknown]
  - Sensory disturbance [Not Recovered/Not Resolved]

NARRATIVE: CASE EVENT DATE: 201812
